FAERS Safety Report 5153087-5 (Version None)
Quarter: 2006Q4

REPORT INFORMATION
  Report Type: 
  Country: None (occurrence: None)
  Receive Date: 20061117
  Receipt Date: 20061103
  Transmission Date: 20070319
  Serious: Yes (Other)
  Sender: FDA-Public Use
  Company Number: CA-AVENTIS-200621496GDDC

PATIENT
  Age: 69 Year
  Sex: Female

DRUGS (9)
  1. FLAGYL [Suspect]
     Route: 048
  2. BACTRIM DS [Suspect]
     Route: 048
  3. COGENTIN [Concomitant]
  4. HALDOL [Concomitant]
     Route: 048
  5. COLACE [Concomitant]
  6. SENOKOT                            /00142201/ [Concomitant]
  7. TYLENOL [Concomitant]
  8. IMAP [Concomitant]
     Route: 030
  9. DULCOLAX                           /00061602/ [Concomitant]
     Route: 048

REACTIONS (4)
  - DYSPHAGIA [None]
  - DYSPNOEA [None]
  - PYREXIA [None]
  - RASH MACULAR [None]
